FAERS Safety Report 6983305-X (Version None)
Quarter: 2010Q3

REPORT INFORMATION
  Report Type: 
  Country: None (occurrence: None)
  Receive Date: 20100914
  Receipt Date: 20100710
  Transmission Date: 20110219
  Serious: No
  Sender: FDA-Public Use
  Company Number: US-PFIZER INC-2010086732

PATIENT
  Sex: Female
  Weight: 48.526 kg

DRUGS (2)
  1. LYRICA [Suspect]
     Indication: NEURALGIA
     Dosage: 75 MG, 2X/DAY
     Route: 048
     Dates: start: 20100709
  2. ULTRAM [Suspect]
     Indication: NEURALGIA
     Dosage: 50 MG, 4X/DAY
     Route: 048
     Dates: start: 20100708

REACTIONS (2)
  - DYSKINESIA [None]
  - NAUSEA [None]
